FAERS Safety Report 7769261-5 (Version None)
Quarter: 2011Q3

REPORT INFORMATION
  Report Type: 
  Country: None (occurrence: None)
  Receive Date: 20110922
  Receipt Date: 20110919
  Transmission Date: 20111222
  Serious: No
  Sender: FDA-Public Use
  Company Number: US-PFIZER INC-2011223478

PATIENT
  Sex: Male
  Weight: 136.5 kg

DRUGS (19)
  1. FENOFIBRATE [Concomitant]
     Indication: BLOOD CHOLESTEROL INCREASED
     Dosage: 160 MG, UNK
  2. FINASTERIDE [Concomitant]
     Indication: PROSTATIC DISORDER
     Dosage: 5 MG, UNK
  3. SIMVASTATIN [Concomitant]
     Indication: BLOOD CHOLESTEROL INCREASED
     Dosage: 20 MG, UNK
  4. ENALAPRIL [Concomitant]
     Indication: HYPERTENSION
     Dosage: 20 MG, 2X/DAY
  5. NEFAZODONE [Concomitant]
     Indication: DEPRESSION
     Dosage: 300 MG, 2X/DAY
  6. PRADAXA [Concomitant]
     Indication: ANTICOAGULANT THERAPY
     Dosage: 150 MG, 2X/DAY
  7. TRAZODONE [Concomitant]
     Indication: DEPRESSION
     Dosage: 300 MG, 2X/DAY
  8. FLONASE [Concomitant]
     Indication: NASAL CONGESTION
     Dosage: UNK
  9. GABAPENTIN [Concomitant]
     Indication: NEURALGIA
     Dosage: UNK
  10. DIGOXIN [Concomitant]
     Indication: CARDIAC DISORDER
     Dosage: 250 UG, UNK
  11. FUROSEMIDE [Concomitant]
     Indication: DIURETIC THERAPY
     Dosage: 620 MG, UNK
  12. PANCURONIUM [Concomitant]
     Dosage: 0.4 MG, UNK
  13. POTASSIUM CHLORIDE [Concomitant]
     Indication: SUPPLEMENTATION THERAPY
     Dosage: 20 MEQ, UNK
  14. SILVER SULFATE [Concomitant]
     Indication: OPEN WOUND
     Dosage: UNK
  15. TOVIAZ [Suspect]
     Indication: HYPERTONIC BLADDER
     Dosage: 8 MG, 2X/DAY
     Route: 048
     Dates: start: 20110101
  16. ASPIRIN [Concomitant]
     Indication: ANTICOAGULANT THERAPY
     Dosage: 80 MG, UNK
  17. METHADONE [Concomitant]
     Dosage: 20 MG, UNK
  18. TYLENOL-500 [Concomitant]
     Indication: PAIN
     Dosage: 50 MG, UNK
  19. NORTRIPTYLINE [Concomitant]
     Indication: DEPRESSION
     Dosage: 100 MG, DAILY

REACTIONS (3)
  - INCORRECT DOSE ADMINISTERED [None]
  - CONSTIPATION [None]
  - FAECES DISCOLOURED [None]
